FAERS Safety Report 13922510 (Version 2)
Quarter: 2017Q3

REPORT INFORMATION
  Report Type: Spontaneous
  Country: US (occurrence: US)
  Receive Date: 20170830
  Receipt Date: 20170925
  Transmission Date: 20171127
  Serious: No
  Sender: FDA-Public Use
  Company Number: US-BAYER-2017-165682

PATIENT

DRUGS (1)
  1. CLIMARA PRO [Suspect]
     Active Substance: ESTRADIOL\LEVONORGESTREL
     Dosage: UNK
     Route: 062
     Dates: start: 2016

REACTIONS (6)
  - Pain of skin [Unknown]
  - Product physical issue [Unknown]
  - Product quality issue [Unknown]
  - Product shape issue [Unknown]
  - Device breakage [Unknown]
  - Drug ineffective [Unknown]
